FAERS Safety Report 25129624 (Version 1)
Quarter: 2025Q1

REPORT INFORMATION
  Report Type: Spontaneous
  Country: US (occurrence: US)
  Receive Date: 20250327
  Receipt Date: 20250327
  Transmission Date: 20250409
  Serious: No
  Sender: PADAGIS
  Company Number: US-PADAGIS-2025PAD00308

PATIENT

DRUGS (1)
  1. SCOPOLAMINE TRANSDERMAL SYSTEM [Suspect]
     Active Substance: SCOPOLAMINE
     Indication: Motion sickness
     Route: 065
     Dates: end: 202410

REACTIONS (3)
  - Dermatitis [Recovered/Resolved]
  - Dermatitis [Recovered/Resolved]
  - Maternal exposure during pregnancy [Unknown]
